FAERS Safety Report 22149221 (Version 2)
Quarter: 2023Q2

REPORT INFORMATION
  Report Type: Spontaneous
  Country: RU (occurrence: RU)
  Receive Date: 20230329
  Receipt Date: 20230428
  Transmission Date: 20230722
  Serious: Yes (Death, Other)
  Sender: FDA-Public Use
  Company Number: RU-AMGEN-RUSSP2023051333

PATIENT

DRUGS (8)
  1. BLINCYTO [Suspect]
     Active Substance: BLINATUMOMAB
     Indication: Acute lymphocytic leukaemia recurrent
     Dosage: 5 MICROGRAM PER SQUARE METRE, ON DAYS 1-7
     Route: 065
  2. BLINCYTO [Suspect]
     Active Substance: BLINATUMOMAB
     Dosage: 15 MICROGRAM PER SQUARE METRE, ON DAYS 8-28
     Route: 065
  3. BLINCYTO [Suspect]
     Active Substance: BLINATUMOMAB
     Dosage: 9 MICROGRAM, QD, ON DAYS 1-7
     Route: 065
  4. BLINCYTO [Suspect]
     Active Substance: BLINATUMOMAB
     Dosage: 28 MICROGRAM, QD, ON DAYS 8-28
     Route: 065
  5. Lymphocytes nos [Concomitant]
     Dosage: ON A COURSE OF BLINCYTO ON DAYS 1, 8, 15, 22
  6. METHOTREXATE [Concomitant]
     Active Substance: METHOTREXATE
     Indication: Prophylaxis
     Dosage: DOSAGE ON THE FIRST AND LAST DAYS OF THE BLINCYTO COURSE
     Route: 029
  7. CYTARABINE [Concomitant]
     Active Substance: CYTARABINE
     Indication: Prophylaxis
     Dosage: DOSAGE ON THE FIRST AND LAST DAYS OF THE BLINCYTO COURSE
     Route: 029
  8. DEXAMETHASONE [Concomitant]
     Active Substance: DEXAMETHASONE
     Indication: Prophylaxis
     Dosage: DOSAGE ON THE FIRST AND LAST DAYS OF THE BLINCYTO COURSE
     Route: 029

REACTIONS (9)
  - Acute lymphocytic leukaemia recurrent [Fatal]
  - Toxicity to various agents [Fatal]
  - Infection [Fatal]
  - Neurotoxicity [Unknown]
  - Seizure [Unknown]
  - Cytokine release syndrome [Unknown]
  - Therapy non-responder [Unknown]
  - Post procedural infection [Unknown]
  - Pyrexia [Unknown]
